FAERS Safety Report 9336272 (Version 2)
Quarter: 2013Q4

REPORT INFORMATION
  Report Type: Spontaneous
  Country: US (occurrence: US)
  Receive Date: 20130607
  Receipt Date: 20131128
  Transmission Date: 20140711
  Serious: No
  Sender: FDA-Public Use
  Company Number: US-009507513-1305USA017003

PATIENT
  Age: 58 Year
  Sex: Male

DRUGS (2)
  1. TEMODAR [Suspect]
     Indication: MALIGNANT MELANOMA STAGE IV
     Dosage: 140 MG, 21 DAYS AND THEN STOPPED 7 DAYS
     Route: 048
     Dates: start: 200901
  2. COMPAZINE [Concomitant]
     Dosage: UNK

REACTIONS (2)
  - Nausea [Not Recovered/Not Resolved]
  - Incorrect drug administration duration [Unknown]
